FAERS Safety Report 13056454 (Version 6)
Quarter: 2020Q1

REPORT INFORMATION
  Report Type: Report from Study
  Country: US (occurrence: US)
  Receive Date: 20161222
  Receipt Date: 20200129
  Transmission Date: 20200409
  Serious: Yes (Disabling, Other)
  Sender: FDA-Public Use
  Company Number: US-SA-2016SA196058

PATIENT
  Age: 62 Year
  Sex: Female

DRUGS (7)
  1. GABAPENTIN. [Concomitant]
     Active Substance: GABAPENTIN
     Indication: MULTIPLE SCLEROSIS
     Dosage: 800 MG,UNK
     Route: 065
     Dates: start: 2005, end: 2018
  2. LISINOPRIL. [Concomitant]
     Active Substance: LISINOPRIL
     Indication: HYPERTENSION
     Dosage: 25 MG,UNK
     Route: 065
  3. ALEMTUZUMAB [Suspect]
     Active Substance: ALEMTUZUMAB
     Indication: MULTIPLE SCLEROSIS
     Dosage: 12 MG,QD
     Route: 041
     Dates: start: 20161003, end: 20161007
  4. OMEPRAZOLE. [Concomitant]
     Active Substance: OMEPRAZOLE
     Dosage: UNK UNK,UNK
     Route: 065
  5. BACLOFEN. [Concomitant]
     Active Substance: BACLOFEN
     Indication: MULTIPLE SCLEROSIS
     Dosage: 10 MG,UNK
     Route: 048
  6. OXYMETAZOLINE [Concomitant]
     Active Substance: OXYMETAZOLINE
     Indication: EPISTAXIS
     Dosage: NASAL SPRAY
     Route: 045
  7. CHLOROTHIAZIDE. [Concomitant]
     Active Substance: CHLOROTHIAZIDE
     Indication: BLOOD PRESSURE MEASUREMENT
     Dosage: 20 MG,UNK
     Route: 065

REACTIONS (39)
  - Petechiae [Recovered/Resolved]
  - Heart rate decreased [Recovered/Resolved]
  - Joint swelling [Not Recovered/Not Resolved]
  - Pruritus [Not Recovered/Not Resolved]
  - Respiratory disorder [Recovered/Resolved]
  - Rectal haemorrhage [Recovered/Resolved]
  - Skin papilloma [Not Recovered/Not Resolved]
  - Exostosis [Unknown]
  - Musculoskeletal discomfort [Recovering/Resolving]
  - Visual impairment [Unknown]
  - X-ray abnormal [Unknown]
  - Condition aggravated [Not Recovered/Not Resolved]
  - Dysstasia [Not Recovered/Not Resolved]
  - Peripheral swelling [Unknown]
  - Joint stiffness [Unknown]
  - Blood pressure increased [Not Recovered/Not Resolved]
  - CD4 lymphocytes decreased [Unknown]
  - Corneal dystrophy [Unknown]
  - Cataract [Recovering/Resolving]
  - Arthralgia [Recovered/Resolved]
  - Arthropathy [Not Recovered/Not Resolved]
  - Antinuclear antibody increased [Recovered/Resolved]
  - Bursitis [Unknown]
  - Musculoskeletal stiffness [Unknown]
  - Gait disturbance [Not Recovered/Not Resolved]
  - Lipoma [Not Recovered/Not Resolved]
  - Osteoarthritis [Unknown]
  - Pruritus [Recovered/Resolved]
  - Condition aggravated [Recovered/Resolved]
  - Arthritis [Unknown]
  - Constipation [Recovered/Resolved]
  - Urticaria [Recovered/Resolved]
  - Blood creatinine increased [Not Recovered/Not Resolved]
  - Connective tissue disorder [Unknown]
  - Pain in extremity [Unknown]
  - Endometriosis [Unknown]
  - Epistaxis [Recovered/Resolved]
  - Back pain [Unknown]
  - Neurostimulator removal [Unknown]

NARRATIVE: CASE EVENT DATE: 2016
